FAERS Safety Report 4322551-0 (Version None)
Quarter: 2004Q1

REPORT INFORMATION
  Report Type: 
  Country: None (occurrence: None)
  Receive Date: 20040319
  Receipt Date: 20040310
  Transmission Date: 20041129
  Serious: Yes (Disabling)
  Sender: FDA-Public Use
  Company Number: 2004-03-0122

PATIENT
  Age: 54 Year
  Sex: Female
  Weight: 58 kg

DRUGS (7)
  1. AERIUS (DESLORATADINE) TABLETS LIKE CLARINEX [Suspect]
     Indication: DERMATITIS
     Dosage: 5-10MG 1 DAY* ORAL
     Route: 048
     Dates: start: 20040101, end: 20040228
  2. CLARITIN [Suspect]
     Indication: DERMATITIS
     Dosage: 10 MG ORAL
     Route: 048
     Dates: start: 20040101
  3. MODURETIC 5-50 [Suspect]
     Indication: OEDEMA
     Dosage: 1TAB QD
  4. AVLOCARDYL [Concomitant]
  5. BEFIZAL [Concomitant]
  6. LEXOMIL (BROMAZEPAM) [Concomitant]
  7. GLEEVEC [Concomitant]

REACTIONS (7)
  - ANXIETY [None]
  - CHEST PAIN [None]
  - EMOTIONAL DISORDER [None]
  - FATIGUE [None]
  - MYALGIA [None]
  - STRESS SYMPTOMS [None]
  - SUPRAVENTRICULAR TACHYCARDIA [None]
